FAERS Safety Report 5806227-6 (Version None)
Quarter: 2008Q3

REPORT INFORMATION
  Report Type: 
  Country: None (occurrence: None)
  Receive Date: 20080709
  Receipt Date: 20080709
  Transmission Date: 20090109
  Serious: Yes (Disabling)
  Sender: FDA-Public Use
  Company Number: None

PATIENT
  Sex: Male

DRUGS (3)
  1. XYLOCAINE [Suspect]
     Indication: LIGAMENT RUPTURE
     Dosage: 270CC 014
     Dates: start: 20041103, end: 20041105
  2. XYLOCAINE [Suspect]
     Dosage: 120ML 049
     Dates: start: 20070828
  3. PAINBUSTER PAIN PUMP [Concomitant]

REACTIONS (2)
  - CHONDROPATHY [None]
  - LOOSE BODY IN JOINT [None]
